FAERS Safety Report 9197750 (Version 1)
Quarter: 2013Q1

REPORT INFORMATION
  Report Type: Spontaneous
  Country: US (occurrence: None)
  Receive Date: 20120709
  Receipt Date: 20120709
  Transmission Date: 20140127
  Serious: Yes (Life-Threatening, Other)
  Sender: FDA-Public Use
  Company Number: PHEH2011US06429

PATIENT
  Age: 81 Year
  Sex: Male

DRUGS (1)
  1. GLEEVEC (IMATINIB) [Suspect]
     Indication: GASTROINTESTINAL CANCER METASTATIC
     Dates: start: 20110602, end: 20110908

REACTIONS (5)
  - Cardiac arrest [None]
  - Periorbital oedema [None]
  - Fatigue [None]
  - Malaise [None]
  - Oedema [None]
